FAERS Safety Report 13861325 (Version 1)
Quarter: 2017Q3

REPORT INFORMATION
  Report Type: Spontaneous
  Country: DE (occurrence: DE)
  Receive Date: 20170811
  Receipt Date: 20170811
  Transmission Date: 20171127
  Serious: Yes (Hospitalization)
  Sender: FDA-Public Use
  Company Number: DE-SA-2017SA126672

PATIENT
  Age: 39 Year
  Sex: Female

DRUGS (1)
  1. LEMTRADA [Suspect]
     Active Substance: ALEMTUZUMAB
     Indication: RELAPSING-REMITTING MULTIPLE SCLEROSIS
     Route: 041
     Dates: start: 20151116, end: 20151120

REACTIONS (27)
  - Blood creatine phosphokinase increased [Recovered/Resolved]
  - Blood creatinine decreased [Recovered/Resolved]
  - Herpes zoster [Recovered/Resolved]
  - Rash pustular [Recovered/Resolved]
  - Eosinophil percentage increased [Not Recovered/Not Resolved]
  - Neuralgia [Recovered/Resolved]
  - Gait disturbance [Not Recovered/Not Resolved]
  - Lymphocyte count decreased [Not Recovered/Not Resolved]
  - Red blood cells urine [Recovered/Resolved]
  - Urinary sediment present [Unknown]
  - White blood cells urine [Recovered/Resolved]
  - Blood glucose increased [Not Recovered/Not Resolved]
  - Blood glucose decreased [Recovered/Resolved]
  - Myositis [Not Recovered/Not Resolved]
  - Blood creatine phosphokinase MB increased [Recovered/Resolved]
  - Blood urea decreased [Recovered/Resolved]
  - Basophil percentage increased [Not Recovered/Not Resolved]
  - Prothrombin time shortened [Recovered/Resolved]
  - Bacterial test [Unknown]
  - Bilirubin urine present [Recovered/Resolved]
  - Lymphocyte percentage decreased [Not Recovered/Not Resolved]
  - Muscular weakness [Not Recovered/Not Resolved]
  - Alanine aminotransferase increased [Not Recovered/Not Resolved]
  - Neutrophil percentage increased [Unknown]
  - Blood cholesterol increased [Not Recovered/Not Resolved]
  - Protein urine present [Recovered/Resolved]
  - C-reactive protein increased [Not Recovered/Not Resolved]

NARRATIVE: CASE EVENT DATE: 201610
